FAERS Safety Report 4558638-7 (Version None)
Quarter: 2005Q1

REPORT INFORMATION
  Report Type: 
  Country: None (occurrence: None)
  Receive Date: 20050121
  Receipt Date: 20050111
  Transmission Date: 20050727
  Serious: Yes (Hospitalization)
  Sender: FDA-Public Use
  Company Number: FR-JNJFOC-20050102560

PATIENT
  Age: 76 Year
  Sex: Female

DRUGS (13)
  1. DURAGESIC [Suspect]
     Indication: DRUG USE FOR UNKNOWN INDICATION
     Route: 062
  2. RISPERDAL [Suspect]
     Indication: DRUG USE FOR UNKNOWN INDICATION
     Route: 049
  3. NOOTROPYL [Suspect]
     Indication: DRUG USE FOR UNKNOWN INDICATION
     Route: 049
  4. OMEPRAZOLE [Suspect]
     Indication: DRUG USE FOR UNKNOWN INDICATION
     Route: 049
  5. DAONIL [Suspect]
     Indication: DRUG USE FOR UNKNOWN INDICATION
     Route: 049
  6. DEROXAT [Suspect]
     Indication: DRUG USE FOR UNKNOWN INDICATION
     Route: 049
  7. CELEBREX [Suspect]
     Indication: DRUG USE FOR UNKNOWN INDICATION
     Route: 049
  8. NITROGLYCERIN [Concomitant]
     Route: 065
  9. XANAX [Concomitant]
     Route: 065
  10. FOSINOPRIL SODIUM [Concomitant]
     Route: 065
  11. STAGID [Concomitant]
     Route: 065
  12. GLUCOR [Concomitant]
     Route: 065
  13. CHRONADALATE [Concomitant]
     Route: 065

REACTIONS (2)
  - EXTRAPYRAMIDAL DISORDER [None]
  - PERSONALITY CHANGE [None]
